FAERS Safety Report 10423529 (Version 1)
Quarter: 2014Q3

REPORT INFORMATION
  Report Type: Spontaneous
  Country: US (occurrence: None)
  Receive Date: 20140722
  Receipt Date: 20140722
  Transmission Date: 20150326
  Serious: No
  Sender: FDA-Public Use
  Company Number: AEGR00377

PATIENT
  Age: 56 Year
  Sex: Male
  Weight: 90.2 kg

DRUGS (2)
  1. JUXTAPID [Suspect]
     Active Substance: LOMITAPIDE MESYLATE
     Indication: HYPERCHOLESTEROLAEMIA
     Route: 048
     Dates: start: 20140208
  2. LISINOPRIL (LISINOPRIL) [Suspect]
     Active Substance: LISINOPRIL
     Indication: HYPERTENSION
     Route: 048
     Dates: start: 20131230

REACTIONS (6)
  - Weight decreased [None]
  - Liver function test abnormal [None]
  - Nausea [None]
  - Dizziness [None]
  - Hypotension [None]
  - Off label use [None]

NARRATIVE: CASE EVENT DATE: 20131230
